FAERS Safety Report 4379517-4 (Version None)
Quarter: 2004Q2

REPORT INFORMATION
  Report Type: 
  Country: None (occurrence: None)
  Receive Date: 20040601
  Receipt Date: 20040408
  Transmission Date: 20050107
  Serious: No
  Sender: FDA-Public Use
  Company Number: WAES 0404USA01036

PATIENT
  Age: 76 Year
  Sex: Female

DRUGS (9)
  1. ZETIA [Suspect]
     Indication: HYPERCHOLESTEROLAEMIA
     Dosage: 10 MG/DAILY/PO
     Route: 048
     Dates: start: 20040202, end: 20040101
  2. CLARINEX [Concomitant]
  3. K-DUR 10 [Concomitant]
  4. LASIX [Concomitant]
  5. NASONEX [Concomitant]
  6. PRAVACHOL [Concomitant]
  7. PROCARDIA [Concomitant]
  8. ASPIRIN [Concomitant]
  9. ATENOLOL [Concomitant]

REACTIONS (3)
  - ERYTHEMA [None]
  - FEELING HOT [None]
  - PALMAR ERYTHEMA [None]
